FAERS Safety Report 4290889-1 (Version None)
Quarter: 2004Q1

REPORT INFORMATION
  Report Type: 
  Country: None (occurrence: None)
  Receive Date: 20040209
  Receipt Date: 20040129
  Transmission Date: 20041129
  Serious: Yes (Death)
  Sender: FDA-Public Use
  Company Number: AU-SHR-03-014556

PATIENT
  Age: 79 Year
  Sex: Female
  Weight: 63 kg

DRUGS (4)
  1. ULTRAVIST 370 [Suspect]
     Indication: COMPUTERISED TOMOGRAM
     Dosage: 100 ML, 1 DOSE, INTRAVENOUS
     Route: 042
     Dates: start: 20030916, end: 20030916
  2. LIGNOCAINE [Concomitant]
  3. METOCLOPRAMIDE [Concomitant]
  4. PARACETAMOL [Concomitant]

REACTIONS (9)
  - ANAPHYLACTIC REACTION [None]
  - ATHEROSCLEROSIS [None]
  - CARDIAC ARREST [None]
  - CIRCULATORY COLLAPSE [None]
  - CORONARY ARTERY ATHEROSCLEROSIS [None]
  - CORONARY ARTERY STENOSIS [None]
  - ELECTROMECHANICAL DISSOCIATION [None]
  - HEPATOSPLENOMEGALY [None]
  - PULMONARY CONGESTION [None]
